FAERS Safety Report 23440000 (Version 2)
Quarter: 2025Q3

REPORT INFORMATION
  Report Type: Spontaneous
  Country: SA (occurrence: SA)
  Receive Date: 20240124
  Receipt Date: 20250731
  Transmission Date: 20251020
  Serious: Yes (Death, Hospitalization)
  Sender: BAUSCH AND LOMB
  Company Number: SA-BAUSCHBL-2024BNL000763

PATIENT
  Age: 66 Year
  Sex: Female

DRUGS (3)
  1. PREDNISOLONE [Suspect]
     Active Substance: PREDNISOLONE
     Indication: Immunosuppressant drug therapy
     Route: 065
  2. MYCOPHENOLATE MOFETIL [Suspect]
     Active Substance: MYCOPHENOLATE MOFETIL
     Indication: Immunosuppressant drug therapy
     Route: 065
  3. TACROLIMUS [Suspect]
     Active Substance: TACROLIMUS
     Indication: Immunosuppressant drug therapy
     Route: 065

REACTIONS (4)
  - Phaeohyphomycosis [Fatal]
  - Cerebral fungal infection [Fatal]
  - Cardiac arrest [Fatal]
  - Deep vein thrombosis [Unknown]
